FAERS Safety Report 23339499 (Version 1)
Quarter: 2023Q4

REPORT INFORMATION
  Report Type: Spontaneous
  Country: GB (occurrence: GB)
  Receive Date: 20231226
  Receipt Date: 20231226
  Transmission Date: 20240109
  Serious: Yes (Other)
  Sender: FDA-Public Use
  Company Number: None

PATIENT
  Age: 53 Year
  Sex: Female
  Weight: 67 kg

DRUGS (14)
  1. MORPHINE [Suspect]
     Active Substance: MORPHINE
     Indication: Product used for unknown indication
     Dosage: (NAPP PHARMACEUTICALS LTD)
     Route: 065
     Dates: start: 20231130
  2. DEXAMETHASONE [Concomitant]
     Active Substance: DEXAMETHASONE
     Indication: Product used for unknown indication
     Dosage: AS PER ONOCLOGY ADVISE
     Route: 065
     Dates: start: 20231206
  3. BUTYLSCOPOLAMINE BROMIDE [Concomitant]
     Active Substance: BUTYLSCOPOLAMINE BROMIDE
     Indication: Product used for unknown indication
     Dosage: 10 TO 20MG S/C WHEN REQUIRED TO CONTROL RESPIRA...
     Route: 058
     Dates: start: 20231018, end: 20231025
  4. LANSOPRAZOLE [Concomitant]
     Active Substance: LANSOPRAZOLE
     Indication: Product used for unknown indication
     Dosage: 1 DOSAGE FORM, DAILY
     Route: 065
     Dates: start: 20231115
  5. LEVOMEPROMAZINE [Concomitant]
     Active Substance: LEVOMEPROMAZINE
     Indication: Product used for unknown indication
     Dosage: 3.125 TO 12.5MG S/C PRN FOR NAUSEA/VOMITING/AGG...
     Route: 065
     Dates: start: 20231018, end: 20231025
  6. METOCLOPRAMIDE [Concomitant]
     Active Substance: METOCLOPRAMIDE
     Indication: Nausea
     Dosage: 1 DOSAGE FORM, TID
     Route: 065
     Dates: start: 20230509
  7. MIDAZOLAM [Concomitant]
     Active Substance: MIDAZOLAM
     Indication: Product used for unknown indication
     Dosage: 2.5 TO 5MG S/C PRN FOR ANXITEY OR BREATHLESSNES...
     Route: 065
     Dates: start: 20231018, end: 20231025
  8. MORPHINE SULFATE [Concomitant]
     Active Substance: MORPHINE SULFATE
     Indication: Product used for unknown indication
     Dosage: 2.5 TO 5MG AS NEEDED FOR PAIN, COUGH OR BREATHL...
     Route: 065
     Dates: start: 20230227, end: 20231130
  9. OXYCODONE HYDROCHLORIDE [Concomitant]
     Active Substance: OXYCODONE HYDROCHLORIDE
     Indication: Product used for unknown indication
     Dosage: 5-10 ML/5-10MG WHEN NEEDED FOR PAIN EVERY 4-6 HR
     Route: 065
     Dates: start: 20231208
  10. ACETAMINOPHEN [Concomitant]
     Active Substance: ACETAMINOPHEN
     Indication: Product used for unknown indication
     Dosage: TAKE TAKE ONE OR TAKE TWO 4 TIMES/DAY
     Route: 065
     Dates: start: 20231124, end: 20231208
  11. RIVAROXABAN [Concomitant]
     Active Substance: RIVAROXABAN
     Indication: Product used for unknown indication
     Dosage: TAKE ONE DAILY LIFELONG AFTER 30/10/23
     Route: 065
     Dates: start: 20231017
  12. WATER [Concomitant]
     Active Substance: WATER
     Indication: Product used for unknown indication
     Dosage: USE AS DIRECTED
     Route: 065
     Dates: start: 20231018, end: 20231025
  13. MORPHINE SULFATE [Concomitant]
     Active Substance: MORPHINE SULFATE
     Indication: Product used for unknown indication
     Dosage: 40 MILLIGRAM, BID
     Route: 065
     Dates: start: 20230227
  14. ZOPICLONE [Concomitant]
     Active Substance: ZOPICLONE
     Indication: Product used for unknown indication
     Dosage: TAKE ONE OR TWO AT NIGHT AS NEEDED FOR SLEEP. C...
     Route: 065
     Dates: start: 20231021, end: 20231118

REACTIONS (2)
  - Mouth swelling [Recovered/Resolved]
  - Hypoaesthesia [Recovered/Resolved]
